FAERS Safety Report 4343154-8 (Version None)
Quarter: 2004Q2

REPORT INFORMATION
  Report Type: 
  Country: None (occurrence: None)
  Receive Date: 20040415
  Receipt Date: 20040329
  Transmission Date: 20050107
  Serious: Yes (Death)
  Sender: FDA-Public Use
  Company Number: 236163

PATIENT
  Age: 40 Year
  Sex: Female
  Weight: 59 kg

DRUGS (5)
  1. NOVOSEVEN [Suspect]
     Indication: HAEMORRHAGE
     Dosage: 102 UG/KG, SINGLE, INTRAVENOUS
     Route: 042
     Dates: start: 20040218, end: 20040218
  2. DOPAMINE HCL [Concomitant]
  3. EPINEPHRINE [Concomitant]
  4. PROSTAGLANDINS [Concomitant]
  5. OXYTOCIN 10 USP UNITS IN DEXTROSE 5% [Concomitant]

REACTIONS (3)
  - DRUG INEFFECTIVE FOR UNAPPROVED INDICATION [None]
  - HAEMORRHAGE [None]
  - HEPATIC RUPTURE [None]
